FAERS Safety Report 4399031-X (Version None)
Quarter: 2004Q3

REPORT INFORMATION
  Report Type: 
  Country: None (occurrence: None)
  Receive Date: 20040712
  Receipt Date: 20040621
  Transmission Date: 20050211
  Serious: Yes (Other)
  Sender: FDA-Public Use
  Company Number: USA040669770

PATIENT
  Age: 4 Year
  Sex: Female

DRUGS (1)
  1. HUMATROPE [Suspect]
     Indication: BLOOD GROWTH HORMONE ABNORMAL

REACTIONS (8)
  - ASTHMA [None]
  - EAR INFECTION [None]
  - GASTRIC HAEMORRHAGE [None]
  - IMMUNE SYSTEM DISORDER [None]
  - MULTIPLE ALLERGIES [None]
  - OTORRHOEA [None]
  - PHARMACEUTICAL PRODUCT COMPLAINT [None]
  - SCARLET FEVER [None]
